FAERS Safety Report 6505481-5 (Version None)
Quarter: 2009Q4

REPORT INFORMATION
  Report Type: 
  Country: None (occurrence: None)
  Receive Date: 20091218
  Receipt Date: 20091214
  Transmission Date: 20100525
  Serious: Yes (Death)
  Sender: FDA-Public Use
  Company Number: US-CELGENEUS-163-21880-09111934

PATIENT
  Sex: Female

DRUGS (2)
  1. REVLIMID [Suspect]
     Route: 048
     Dates: start: 20070101, end: 20091005
  2. REVLIMID [Suspect]
     Route: 048
     Dates: start: 20031204

REACTIONS (1)
  - LUNG NEOPLASM MALIGNANT [None]
